FAERS Safety Report 8143512-X (Version None)
Quarter: 2012Q1

REPORT INFORMATION
  Report Type: 
  Country: None (occurrence: None)
  Receive Date: 20120217
  Receipt Date: 20120209
  Transmission Date: 20120608
  Serious: Yes (Hospitalization, Other)
  Sender: FDA-Public Use
  Company Number: US-US-EMD SERONO, INC.-7089639

PATIENT
  Sex: Female
  Weight: 122 kg

DRUGS (3)
  1. RITALIN [Concomitant]
     Indication: FATIGUE
  2. SYNTHROID [Concomitant]
     Indication: THYROID DISORDER
  3. REBIF [Suspect]
     Indication: MULTIPLE SCLEROSIS
     Route: 058
     Dates: start: 20110101

REACTIONS (5)
  - NEUROGENIC BLADDER [None]
  - HYPOTENSION [None]
  - URINARY TRACT INFECTION [None]
  - VOMITING [None]
  - HYPERTENSION [None]
